FAERS Safety Report 9546820 (Version 3)
Quarter: 2015Q4

REPORT INFORMATION
  Report Type: Report from Study
  Country: GB (occurrence: GB)
  Receive Date: 20130924
  Receipt Date: 20151022
  Transmission Date: 20160305
  Serious: Yes (Hospitalization)
  Sender: FDA-Public Use
  Company Number: GB-BRISTOL-MYERS SQUIBB COMPANY-19385384

PATIENT
  Age: 73 Year
  Sex: Male

DRUGS (5)
  1. DASATINIB [Suspect]
     Active Substance: DASATINIB
     Indication: CHRONIC MYELOID LEUKAEMIA
     Dosage: INTERRUPTED ON:26JUL13,4SEP13  RESTARTED ON:30JUL13
     Route: 048
     Dates: start: 20120803
  2. ATROVENT [Concomitant]
     Active Substance: IPRATROPIUM BROMIDE
     Indication: CHRONIC OBSTRUCTIVE PULMONARY DISEASE
     Dosage: 1DF=40MIC
     Route: 065
     Dates: start: 2008
  3. DASATINIB [Suspect]
     Active Substance: DASATINIB
     Dosage: 100 MG, QD
     Route: 048
     Dates: start: 20130730
  4. ALFUZOSIN [Concomitant]
     Active Substance: ALFUZOSIN
     Indication: BENIGN PROSTATIC HYPERPLASIA
     Dosage: ONGOING
     Route: 065
     Dates: start: 2008
  5. SERETIDE [Concomitant]
     Active Substance: FLUTICASONE FUROATE\SALMETEROL XINAFOATE
     Indication: CHRONIC OBSTRUCTIVE PULMONARY DISEASE
     Dosage: 1 DF=250M/C, BID
     Route: 065
     Dates: start: 2008

REACTIONS (1)
  - Colitis [Recovered/Resolved]

NARRATIVE: CASE EVENT DATE: 20130725
